FAERS Safety Report 7652228-5 (Version None)
Quarter: 2011Q3

REPORT INFORMATION
  Report Type: 
  Country: None (occurrence: None)
  Receive Date: 20110803
  Receipt Date: 20110722
  Transmission Date: 20111222
  Serious: Yes (Hospitalization, Other)
  Sender: FDA-Public Use
  Company Number: US-BAYER-201010325NA

PATIENT
  Age: 48 Year
  Sex: Male
  Weight: 86.168 kg

DRUGS (20)
  1. PLATELETS [Concomitant]
     Dosage: 764 ML, UNK
     Dates: start: 20061127
  2. LOPRESSOR [Concomitant]
     Dosage: 50 MG, TID
  3. ANCEF [Concomitant]
     Dosage: 2 GMS
     Route: 042
     Dates: start: 20060808
  4. HYDROCODONE [Concomitant]
     Dosage: UNK
     Route: 048
     Dates: start: 20021120
  5. FOLIC ACID [Concomitant]
     Dosage: 1 MG, UNK
  6. RED BLOOD CELLS [Concomitant]
     Dosage: 4 U, UNK
     Dates: start: 20061127
  7. METOPROLOL TARTRATE [Concomitant]
     Dosage: DAILY DOSE 100 MG
     Route: 048
     Dates: start: 20010618
  8. CYCLOBENZAPRINE HYDROCHLORIDE [Concomitant]
     Dosage: DAILY DOSE 10 MG
     Route: 048
  9. CRYOPRECIPITATES [Concomitant]
     Dosage: 270 ML, UNK
     Dates: start: 20061127
  10. CLONIDINE [Concomitant]
     Dosage: DAILY DOSE 1 MG
     Route: 048
     Dates: start: 20010618
  11. REGLON (NOS) [Concomitant]
     Dosage: 5 MG, TID 30 MIN PRIOR TO MEALS
  12. FRESH FROZEN PLASMA [Concomitant]
     Dosage: 850 ML, UNK
     Dates: start: 20061127
  13. TRASYLOL [Suspect]
     Indication: AORTIC DISSECTION
     Dosage: UNK
     Route: 042
     Dates: start: 20061127, end: 20061128
  14. LOTREL [Concomitant]
     Dosage: UNK
     Route: 048
     Dates: start: 20021030
  15. NORVASC [Concomitant]
     Dosage: 10 MG DAILY
  16. PROTONIX [Concomitant]
     Dosage: 40 MG, BID
  17. ACCUPRIL [Concomitant]
     Dosage: DAILY DOSE 40 MG
     Route: 048
     Dates: start: 20020528
  18. BEXTRA [Concomitant]
     Dosage: DAILY DOSE 10 MG
     Route: 048
     Dates: start: 20030105
  19. BLOOD AND RELATED PRODUCTS [Concomitant]
     Dosage: UNK
     Dates: start: 20061208
  20. NEPHRO-VITE [VITAMINS NOS] [Concomitant]
     Dosage: 1 TAB DAILY

REACTIONS (10)
  - RENAL IMPAIRMENT [None]
  - FEAR [None]
  - RENAL FAILURE [None]
  - EMOTIONAL DISTRESS [None]
  - PAIN [None]
  - INJURY [None]
  - ANXIETY [None]
  - STRESS [None]
  - UNEVALUABLE EVENT [None]
  - RENAL INJURY [None]
